FAERS Safety Report 17813559 (Version 3)
Quarter: 2020Q2

REPORT INFORMATION
  Report Type: Report from Study
  Country: BR (occurrence: BR)
  Receive Date: 20200521
  Receipt Date: 20200602
  Transmission Date: 20200714
  Serious: Yes (Other)
  Sender: FDA-Public Use
  Company Number: NVSC2020BR137426

PATIENT
  Sex: Female
  Weight: 82 kg

DRUGS (3)
  1. TEGRETOL XR [Suspect]
     Active Substance: CARBAMAZEPINE
     Indication: PRODUCT USED FOR UNKNOWN INDICATION
     Dosage: UNK, TID (CONTINIOUS USE)
     Route: 065
  2. TEGRETOL XR [Suspect]
     Active Substance: CARBAMAZEPINE
     Dosage: UNK (20 CE)
     Route: 065
  3. TEGRETOL XR [Suspect]
     Active Substance: CARBAMAZEPINE
     Dosage: UNK, (60 CE) CONT (FOR MORE THAN 10 YEARS)
     Route: 065

REACTIONS (7)
  - Diabetes mellitus [Unknown]
  - Visual impairment [Unknown]
  - Cataract [Not Recovered/Not Resolved]
  - Product packaging issue [Unknown]
  - Product selection error [Unknown]
  - Pain [Unknown]
  - Pain in extremity [Not Recovered/Not Resolved]
